FAERS Safety Report 7226445-2 (Version None)
Quarter: 2010Q4

REPORT INFORMATION
  Report Type: 
  Country: None (occurrence: None)
  Receive Date: 20101126
  Receipt Date: 20100817
  Transmission Date: 20110411
  Serious: No
  Sender: FDA-Public Use
  Company Number: 313377

PATIENT
  Age: 79 Year
  Sex: Male

DRUGS (6)
  1. VICTOZA [Suspect]
     Indication: TYPE 2 DIABETES MELLITUS
     Dosage: SUBCUTANEOUS
     Route: 058
     Dates: start: 20100515
  2. LASIX [Suspect]
     Indication: FLUID RETENTION
     Dosage: ORAL
     Route: 048
  3. METFORMIN HCL [Concomitant]
  4. GLIMEPIRIDE [Concomitant]
  5. LIPITOR [Concomitant]
  6. BYETTA [Concomitant]

REACTIONS (5)
  - CHILLS [None]
  - HYPERTENSION [None]
  - LETHARGY [None]
  - NAUSEA [None]
  - RHINORRHOEA [None]
